FAERS Safety Report 17244020 (Version 2)
Quarter: 2020Q1

REPORT INFORMATION
  Report Type: Report from Study
  Country: IE (occurrence: IE)
  Receive Date: 20200107
  Receipt Date: 20200130
  Transmission Date: 20200409
  Serious: Yes (Other)
  Sender: FDA-Public Use
  Company Number: IE-JNJFOC-20191247113

PATIENT
  Sex: Female

DRUGS (13)
  1. DELTACORTRIL [Concomitant]
     Active Substance: PREDNISOLONE
  2. TRAMADOL. [Concomitant]
     Active Substance: TRAMADOL
  3. DESUNIN [Concomitant]
     Active Substance: CHOLECALCIFEROL
  4. RIVOTRIL [Concomitant]
     Active Substance: CLONAZEPAM
     Route: 050
  5. STELARA [Suspect]
     Active Substance: USTEKINUMAB
     Indication: VASCULITIS
     Route: 058
     Dates: start: 20160802
  6. PANTOPRAZOLE [Concomitant]
     Active Substance: PANTOPRAZOLE
     Route: 050
  7. ELTROXIN [Concomitant]
     Active Substance: LEVOTHYROXINE
     Dosage: 125 MCG
     Route: 050
  8. ENSURE [Concomitant]
     Active Substance: AMINO ACIDS\DEXTROSE\ELECTROLYTES NOS\SOYBEAN OIL\VITAMINS
  9. AMITRIPTYLINE [Concomitant]
     Active Substance: AMITRIPTYLINE
  10. ASPRIN [Concomitant]
     Active Substance: ASPIRIN
     Route: 050
  11. CLONAZEPAM. [Concomitant]
     Active Substance: CLONAZEPAM
     Dosage: 500 MCG
     Route: 050
  12. PARACETAMOL [Concomitant]
     Active Substance: ACETAMINOPHEN
     Route: 050
  13. PALEXIA [Concomitant]
     Active Substance: TAPENTADOL HYDROCHLORIDE
     Dosage: PALEXIA SLOW RELEASE
     Route: 050

REACTIONS (5)
  - Respiratory tract infection [Recovered/Resolved]
  - Nausea [Unknown]
  - Product use in unapproved indication [Unknown]
  - Back pain [Unknown]
  - Off label use [Unknown]
